FAERS Safety Report 17704344 (Version 1)
Quarter: 2020Q2

REPORT INFORMATION
  Report Type: Spontaneous
  Country: FR (occurrence: FR)
  Receive Date: 20200424
  Receipt Date: 20200424
  Transmission Date: 20200714
  Serious: Yes (Disabling)
  Sender: FDA-Public Use
  Company Number: NVSC2020FR109898

PATIENT
  Age: 68 Year
  Sex: Female
  Weight: 72 kg

DRUGS (3)
  1. FLUDARABINE PHOSPHATE. [Suspect]
     Active Substance: FLUDARABINE PHOSPHATE
     Indication: LEUKAEMIA
     Dosage: 50 MG, UNKNOWN
     Route: 048
     Dates: start: 20190617, end: 20190913
  2. CYCLOPHOSPHAMID SANDOZ [Suspect]
     Active Substance: CYCLOPHOSPHAMIDE
     Indication: LEUKAEMIA
     Dosage: 300 MG, UNKNOWN
     Route: 048
     Dates: start: 20190617, end: 20190913
  3. RITUXIMAB. [Suspect]
     Active Substance: RITUXIMAB
     Indication: LEUKAEMIA
     Dosage: 900 MG, UNKNOWN
     Route: 042
     Dates: start: 20190617, end: 20190909

REACTIONS (1)
  - Deafness bilateral [Recovering/Resolving]

NARRATIVE: CASE EVENT DATE: 20191101
